FAERS Safety Report 10149453 (Version 1)
Quarter: 2014Q2

REPORT INFORMATION
  Report Type: Spontaneous
  Country: FR (occurrence: FR)
  Receive Date: 20140502
  Receipt Date: 20140502
  Transmission Date: 20141212
  Serious: Yes (Hospitalization, Other)
  Sender: FDA-Public Use
  Company Number: FR-MPIJNJ-2014JNJ003102

PATIENT
  Sex: 0

DRUGS (9)
  1. VELCADE [Suspect]
     Indication: PLASMA CELL MYELOMA
     Dosage: UNK
     Route: 058
     Dates: start: 20140401, end: 20140411
  2. MELPHALAN [Suspect]
     Indication: PLASMA CELL MYELOMA
     Dosage: UNK
     Route: 065
     Dates: start: 20140401, end: 20140404
  3. PREDNISONE [Suspect]
     Indication: PLASMA CELL MYELOMA
     Dosage: 100 MG, QD
     Route: 065
     Dates: start: 20140401
  4. BACTRIM [Suspect]
     Indication: PRODUCT USED FOR UNKNOWN INDICATION
     Dosage: UNK, 3/WEEK
     Route: 065
  5. ZELITREX [Concomitant]
     Dosage: 500 MG, UNK
  6. LEDERFOLINE [Concomitant]
  7. TAHOR [Concomitant]
  8. OROKEN [Concomitant]
  9. CEFLOX [Concomitant]

REACTIONS (8)
  - Shock [Recovering/Resolving]
  - Rash [Recovering/Resolving]
  - Neuropathy peripheral [Recovering/Resolving]
  - Aplasia [Recovered/Resolved]
  - Temperature intolerance [Recovering/Resolving]
  - Chills [Recovering/Resolving]
  - Asthenia [Recovering/Resolving]
  - General physical health deterioration [Recovering/Resolving]
